FAERS Safety Report 21580123 (Version 1)
Quarter: 2022Q4

REPORT INFORMATION
  Report Type: Spontaneous
  Country: US (occurrence: US)
  Receive Date: 20221110
  Receipt Date: 20221110
  Transmission Date: 20230113
  Serious: Yes (Other)
  Sender: FDA-Public Use
  Company Number: US-PRINSTON PHARMACEUTICAL INC.-2022PRN00407

PATIENT
  Age: 78 Year
  Sex: Male

DRUGS (1)
  1. DOXYCYCLINE HYCLATE [Suspect]
     Active Substance: DOXYCYCLINE HYCLATE
     Indication: Prostatitis
     Dosage: 100 MG, 2X/DAY
     Route: 048

REACTIONS (2)
  - Gastrointestinal injury [Recovered/Resolved]
  - Gastrointestinal haemorrhage [Recovered/Resolved]
